FAERS Safety Report 7791368-7 (Version None)
Quarter: 2011Q4

REPORT INFORMATION
  Report Type: 
  Country: None (occurrence: None)
  Receive Date: 20111003
  Receipt Date: 20110920
  Transmission Date: 20120403
  Serious: Yes (Other)
  Sender: FDA-Public Use
  Company Number: JP-SP-2011-09357

PATIENT
  Age: 77 Year
  Sex: Male

DRUGS (1)
  1. IMMUCYST [Suspect]
     Indication: BLADDER CANCER STAGE 0, WITH CANCER IN SITU
     Route: 043
     Dates: start: 20110913, end: 20110913

REACTIONS (2)
  - REITER'S SYNDROME [None]
  - OCULAR HYPERAEMIA [None]
